FAERS Safety Report 16329047 (Version 1)
Quarter: 2019Q2

REPORT INFORMATION
  Report Type: Report from Study
  Country: None (occurrence: US)
  Receive Date: 20190519
  Receipt Date: 20190519
  Transmission Date: 20190711
  Serious: Yes (Other)
  Sender: FDA-Public Use
  Company Number: US-ABBVIE-19K-163-2782191-00

PATIENT
  Age: 59 Year
  Sex: Female

DRUGS (1)
  1. HUMIRA [Suspect]
     Active Substance: ADALIMUMAB
     Indication: CROHN^S DISEASE
     Route: 058

REACTIONS (9)
  - Exostosis [Recovering/Resolving]
  - Incorrect product administration duration [Recovered/Resolved]
  - Crohn^s disease [Recovered/Resolved]
  - Hypophagia [Unknown]
  - Osteoarthritis [Recovering/Resolving]
  - Muscle rupture [Recovering/Resolving]
  - Emotional distress [Recovering/Resolving]
  - Anxiety [Recovering/Resolving]
  - Mycotic allergy [Unknown]

NARRATIVE: CASE EVENT DATE: 201901
